FAERS Safety Report 5030346-8 (Version None)
Quarter: 2006Q2

REPORT INFORMATION
  Report Type: 
  Country: None (occurrence: None)
  Receive Date: 20060614
  Receipt Date: 20060526
  Transmission Date: 20061013
  Serious: Yes (Hospitalization)
  Sender: FDA-Public Use
  Company Number: US200605006200

PATIENT
  Age: 65 Year
  Sex: Female

DRUGS (2)
  1. FORTEO [Suspect]
     Indication: OSTEOPOROSIS
  2. FOSTEO PEN (250MCG/ML) (FORTEO PEN 250MCG/ML (3ML)) PEN, DISPOSABLE [Concomitant]

REACTIONS (1)
  - MYOCARDIAL INFARCTION [None]
